FAERS Safety Report 5449559-6 (Version None)
Quarter: 2007Q3

REPORT INFORMATION
  Report Type: 
  Country: None (occurrence: None)
  Receive Date: 20070907
  Receipt Date: 20070821
  Transmission Date: 20080115
  Serious: Yes (Life-Threatening, Hospitalization)
  Sender: FDA-Public Use
  Company Number: CFX20070008

PATIENT
  Age: 56 Year
  Sex: Male
  Weight: 86.1834 kg

DRUGS (6)
  1. CIPROFLOXACIN [Suspect]
     Indication: BIOPSY PROSTATE
     Dosage: 500 MG ONCE PO
     Route: 048
     Dates: start: 20070810, end: 20070810
  2. CIPROFLOXACIN [Suspect]
     Indication: PAIN PROPHYLAXIS
     Dosage: 500 MG ONCE PO
     Route: 048
     Dates: start: 20070810, end: 20070810
  3. CIPROFLOXACIN [Suspect]
     Indication: PROPHYLAXIS
     Dosage: 500 MG ONCE PO
     Route: 048
     Dates: start: 20070810, end: 20070810
  4. ENDOCET 5/325 MG ENDO [Suspect]
     Indication: PROCEDURAL PAIN
     Dosage: 2 TABS ONCE PO
     Route: 048
     Dates: start: 20070810, end: 20070810
  5. DIAZEPAM [Suspect]
     Indication: SEDATIVE THERAPY
     Dosage: 5 MG ONCE PO
     Route: 048
     Dates: start: 20070810, end: 20070810
  6. VYTORIN [Concomitant]

REACTIONS (13)
  - ABNORMAL BEHAVIOUR [None]
  - BALANCE DISORDER [None]
  - CARDIAC ARREST [None]
  - COLD SWEAT [None]
  - CONVULSION [None]
  - DIZZINESS [None]
  - DYSKINESIA [None]
  - FATIGUE [None]
  - HEADACHE [None]
  - NAUSEA [None]
  - RESPIRATORY ARREST [None]
  - SINUS BRADYCARDIA [None]
  - TRICUSPID VALVE INCOMPETENCE [None]
